FAERS Safety Report 8127537-6 (Version None)
Quarter: 2012Q1

REPORT INFORMATION
  Report Type: 
  Country: None (occurrence: None)
  Receive Date: 20120210
  Receipt Date: 20120127
  Transmission Date: 20120608
  Serious: Yes (Other)
  Sender: FDA-Public Use
  Company Number: US-COVIDIEN/TYCO HEALTHCARE/MALLINCKRODT-T201200525

PATIENT

DRUGS (1)
  1. MORPHINE [Suspect]
     Dosage: 5 MG, UNK

REACTIONS (1)
  - INCORRECT DOSE ADMINISTERED [None]
